FAERS Safety Report 23794432 (Version 1)
Quarter: 2024Q2

REPORT INFORMATION
  Report Type: Spontaneous
  Country: US (occurrence: None)
  Receive Date: 20240426
  Receipt Date: 20240426
  Transmission Date: 20240715
  Serious: No
  Sender: FDA-Public Use
  Company Number: None

PATIENT
  Age: 61 Year
  Sex: Female

DRUGS (1)
  1. SUCRALFATE [Suspect]
     Active Substance: SUCRALFATE
     Dosage: OTHER QUANTITY : 1 DROP ;?FREQUENCY : TWICE A DAY;?
     Route: 048
     Dates: start: 20230328, end: 20230414

REACTIONS (5)
  - Rash pruritic [None]
  - Dermatitis [None]
  - Epidermal necrosis [None]
  - Connective tissue disorder [None]
  - Viral rash [None]

NARRATIVE: CASE EVENT DATE: 20230421
